FAERS Safety Report 21191707 (Version 1)
Quarter: 2022Q3

REPORT INFORMATION
  Report Type: Spontaneous
  Country: US (occurrence: US)
  Receive Date: 20220809
  Receipt Date: 20220809
  Transmission Date: 20221027
  Serious: No
  Sender: FDA-Public Use
  Company Number: US-BRISTOL-MYERS SQUIBB COMPANY-2022-086462

PATIENT
  Age: 77 Year
  Sex: Male

DRUGS (1)
  1. POMALYST [Suspect]
     Active Substance: POMALIDOMIDE
     Indication: Plasma cell myeloma
     Dosage: FREQUENCY: MONDAY ,WEDNESDAY, AND FRIDAY FOR 3 WEEKS ON, 7 DAYS OFF.
     Route: 048
     Dates: start: 20220315

REACTIONS (2)
  - Skin disorder [Not Recovered/Not Resolved]
  - Intentional product use issue [Unknown]
